FAERS Safety Report 5925008-6 (Version None)
Quarter: 2008Q3

REPORT INFORMATION
  Report Type: 
  Country: None (occurrence: None)
  Receive Date: 20080909
  Receipt Date: 20080410
  Transmission Date: 20090109
  Serious: Yes (Death)
  Sender: FDA-Public Use
  Company Number: 163-20785-08040793

PATIENT
  Age: 59 Year
  Sex: Male

DRUGS (2)
  1. THALOMID [Suspect]
     Indication: HEPATIC NEOPLASM MALIGNANT
     Dosage: 100 MG, 2 IN 1 D, ORAL ; 50 MG, 1 IN 1 D, ORAL
     Route: 048
     Dates: start: 20061221, end: 20070301
  2. THALOMID [Suspect]
     Indication: HEPATIC NEOPLASM MALIGNANT
     Dosage: 100 MG, 2 IN 1 D, ORAL ; 50 MG, 1 IN 1 D, ORAL
     Route: 048
     Dates: start: 20080201, end: 20080201

REACTIONS (1)
  - DEATH [None]
